FAERS Safety Report 15949546 (Version 3)
Quarter: 2019Q4

REPORT INFORMATION
  Report Type: Spontaneous
  Country: CO (occurrence: CO)
  Receive Date: 20190211
  Receipt Date: 20191203
  Transmission Date: 20200122
  Serious: Yes (Other)
  Sender: FDA-Public Use
  Company Number: CO-BAYER-2019-027808

PATIENT
  Age: 79 Year
  Sex: Female
  Weight: 56 kg

DRUGS (1)
  1. ULTRAVIST? 300 [Suspect]
     Active Substance: IOPROMIDE
     Indication: SCAN WITH CONTRAST
     Dosage: 40 ML, ONCE
     Route: 042
     Dates: start: 20190129, end: 20190129

REACTIONS (8)
  - Erythema [Recovered/Resolved]
  - Bladder sphincter atony [Recovered/Resolved]
  - Hypotension [Recovered/Resolved]
  - Hypersensitivity [Unknown]
  - Vomiting [Unknown]
  - Pruritus [Unknown]
  - Contrast media reaction [None]
  - Bradycardia [Unknown]

NARRATIVE: CASE EVENT DATE: 20190129
